FAERS Safety Report 7973758-2 (Version None)
Quarter: 2011Q4

REPORT INFORMATION
  Report Type: 
  Country: None (occurrence: None)
  Receive Date: 20111213
  Receipt Date: 20111208
  Transmission Date: 20120403
  Serious: Yes (Disabling, Other)
  Sender: FDA-Public Use
  Company Number: PHEH2009US16962

PATIENT
  Sex: Female

DRUGS (18)
  1. ZOMETA [Suspect]
     Indication: MULTIPLE MYELOMA
     Dates: end: 20081107
  2. HYDROCODONE [Concomitant]
     Route: 048
  3. PENICILLIN VK [Concomitant]
     Route: 048
  4. CHLORHEXIDINE GLUCONATE [Concomitant]
  5. ALKERAN [Concomitant]
     Dosage: 6 MG, DAILY FOR 7 DAYS EVERY 6 WEEKS
  6. THALIDOMIDE [Concomitant]
     Dosage: 50 MG, DAILY
  7. FENTANYL [Concomitant]
  8. OXYCODONE HCL [Concomitant]
     Route: 048
  9. METHYLPREDNISOLONE [Concomitant]
  10. TRAMADOL HCL [Concomitant]
     Route: 048
  11. DILAUDID [Concomitant]
  12. HEP-LOCK [Concomitant]
  13. SENNACOTS [Concomitant]
  14. IBUPROFEN [Concomitant]
  15. AMLODIPINE BESYLATE [Concomitant]
     Dosage: 5 MG, DAILY
  16. AMOX-CLAV [Concomitant]
     Route: 048
  17. NAPROXEN [Concomitant]
     Route: 048
  18. ASPIRIN [Concomitant]
     Dosage: 81 MG, PER DAY

REACTIONS (33)
  - MULTIPLE MYELOMA [None]
  - PAIN IN JAW [None]
  - POST HERPETIC NEURALGIA [None]
  - SINUS DISORDER [None]
  - OSTEONECROSIS OF JAW [None]
  - LOOSE TOOTH [None]
  - DENTURE WEARER [None]
  - BRONCHITIS [None]
  - PAIN [None]
  - RENAL DISORDER [None]
  - RENAL ARTERY ARTERIOSCLEROSIS [None]
  - UPPER LIMB FRACTURE [None]
  - INJURY [None]
  - NIGHT SWEATS [None]
  - HERPES ZOSTER [None]
  - FALL [None]
  - MITRAL VALVE INCOMPETENCE [None]
  - MONOCLONAL GAMMOPATHY [None]
  - BONE LESION [None]
  - EXPOSED BONE IN JAW [None]
  - EXCORIATION [None]
  - ANXIETY [None]
  - SLEEP APNOEA SYNDROME [None]
  - PRIMARY SEQUESTRUM [None]
  - ANHEDONIA [None]
  - HYPOAESTHESIA [None]
  - CARDIOMEGALY [None]
  - ANAEMIA [None]
  - HYPERTENSION [None]
  - FATIGUE [None]
  - RADIUS FRACTURE [None]
  - VAGINAL HAEMORRHAGE [None]
  - RENAL ARTERY STENOSIS [None]
